FAERS Safety Report 9956735 (Version 1)
Quarter: 2014Q1

REPORT INFORMATION
  Report Type: Report from Study
  Country: US (occurrence: US)
  Receive Date: 20140304
  Receipt Date: 20140304
  Transmission Date: 20141002
  Serious: No
  Sender: FDA-Public Use
  Company Number: US-ABBVIE-13P-163-1097082-00

PATIENT
  Sex: Female
  Weight: 88.53 kg

DRUGS (6)
  1. HUMIRA [Suspect]
     Indication: RHEUMATOID ARTHRITIS
     Route: 058
     Dates: end: 201202
  2. HUMIRA [Suspect]
     Dates: end: 201301
  3. HUMIRA [Suspect]
     Dates: start: 201301
  4. ETODOLAC [Concomitant]
     Indication: RHEUMATOID ARTHRITIS
  5. SULFASALZAINE [Concomitant]
     Indication: RHEUMATOID ARTHRITIS
  6. PREDNISONE [Concomitant]
     Indication: RHEUMATOID ARTHRITIS

REACTIONS (6)
  - Pruritus [Not Recovered/Not Resolved]
  - Blood urine present [Recovered/Resolved]
  - Cystitis interstitial [Not Recovered/Not Resolved]
  - Skin disorder [Not Recovered/Not Resolved]
  - Bladder pain [Not Recovered/Not Resolved]
  - Rheumatoid arthritis [Recovered/Resolved]
